FAERS Safety Report 7795798-9 (Version None)
Quarter: 2011Q4

REPORT INFORMATION
  Report Type: 
  Country: None (occurrence: None)
  Receive Date: 20111004
  Receipt Date: 20110929
  Transmission Date: 20120403
  Serious: No
  Sender: FDA-Public Use
  Company Number: ES-PFIZER INC-2011210810

PATIENT
  Age: 71 Year
  Sex: Female

DRUGS (1)
  1. SUNITINIB MALATE [Suspect]
     Indication: RENAL CELL CARCINOMA
     Dosage: 50 (UNIT UNSPECIFIED)

REACTIONS (2)
  - ASTHENIA [None]
  - MUCOSAL INFLAMMATION [None]
